FAERS Safety Report 10626406 (Version 1)
Quarter: 2014Q4

REPORT INFORMATION
  Report Type: Spontaneous
  Country: US (occurrence: None)
  Receive Date: 20141121
  Receipt Date: 20141121
  Transmission Date: 20150529
  Serious: No
  Sender: FDA-Public Use
  Company Number: 163-10004-14065214

PATIENT
  Age: 67 Year
  Sex: Female

DRUGS (6)
  1. AMBIEN [Concomitant]
     Active Substance: ZOLPIDEM TARTRATE
  2. OTEZLA [Suspect]
     Active Substance: APREMILAST
     Indication: PSORIATIC ARTHROPATHY
     Dosage: 2 IN 1 D
     Route: 048
     Dates: start: 20140623
  3. PREDNISONE (PREDNISONE) [Concomitant]
     Active Substance: PREDNISONE
  4. FOLIC ACID (FOLIC ACID) [Concomitant]
     Active Substance: FOLIC ACID
  5. ZYRTEC [Concomitant]
     Active Substance: CETIRIZINE HYDROCHLORIDE
  6. HYDROCODONE/APAP (VICODIN) [Concomitant]

REACTIONS (3)
  - Arthritis [None]
  - Dyspepsia [None]
  - Nausea [None]

NARRATIVE: CASE EVENT DATE: 20140623
